FAERS Safety Report 4724301-2 (Version None)
Quarter: 2005Q3

REPORT INFORMATION
  Report Type: 
  Country: None (occurrence: None)
  Receive Date: 20050721
  Receipt Date: 20050721
  Transmission Date: 20060218
  Serious: No
  Sender: FDA-Public Use
  Company Number: None

PATIENT
  Sex: Male

DRUGS (1)
  1. TOP TRESADERM UNK [Suspect]
     Indication: DRUG ADMINISTRATION ERROR
     Dosage: OPHT
     Route: 047
     Dates: start: 20050622, end: 20050622

REACTIONS (6)
  - ACCIDENTAL EXPOSURE [None]
  - EYE DISORDER [None]
  - EYE IRRITATION [None]
  - INSTILLATION SITE REACTION [None]
  - OCULAR HYPERAEMIA [None]
  - WRONG DRUG ADMINISTERED [None]
